FAERS Safety Report 8393292-8 (Version None)
Quarter: 2012Q2

REPORT INFORMATION
  Report Type: 
  Country: None (occurrence: None)
  Receive Date: 20120529
  Receipt Date: 20120522
  Transmission Date: 20120825
  Serious: Yes (Hospitalization)
  Sender: FDA-Public Use
  Company Number: TR-PFIZER INC-2012124978

PATIENT
  Age: 71 Year
  Sex: Female

DRUGS (1)
  1. SUNITINIB MALATE [Suspect]
     Indication: METASTATIC RENAL CELL CARCINOMA
     Dosage: 50 MG/DAY FOR 4 WEEKS FOLLOWED BY 2 WEEKS OF REST
     Route: 048

REACTIONS (1)
  - AUTOIMMUNE THYROIDITIS [None]
